FAERS Safety Report 5724435-X (Version None)
Quarter: 2008Q2

REPORT INFORMATION
  Report Type: 
  Country: None (occurrence: None)
  Receive Date: 20080428
  Receipt Date: 20080411
  Transmission Date: 20081010
  Serious: Yes (Death, Hospitalization, Disabling)
  Sender: FDA-Public Use
  Company Number: 013-21880-08021680

PATIENT
  Age: 68 Year
  Sex: Male
  Weight: 72 kg

DRUGS (6)
  1. REVLIMID [Suspect]
     Indication: MULTIPLE MYELOMA
     Dosage: 10 MG, 21 DAYS EACH 28 DAYS, ORAL
     Route: 048
     Dates: start: 20070901, end: 20080225
  2. DEXAMETHASONE TAB [Concomitant]
  3. ZOLPIDEM [Concomitant]
  4. OMEPRAZOLE [Concomitant]
  5. NA2CO3 (SODIUM BICARBONATE) [Concomitant]
  6. NEURONTIN [Concomitant]

REACTIONS (14)
  - AMYLOIDOSIS [None]
  - ASTHENIA [None]
  - CONDITION AGGRAVATED [None]
  - DEMYELINATING POLYNEUROPATHY [None]
  - DISEASE PROGRESSION [None]
  - FATIGUE [None]
  - HYPOAESTHESIA [None]
  - MUSCULAR WEAKNESS [None]
  - MUSCULOSKELETAL STIFFNESS [None]
  - NERVE CONDUCTION STUDIES ABNORMAL [None]
  - NEUROLOGICAL EXAMINATION ABNORMAL [None]
  - PAIN [None]
  - PNEUMONIA [None]
  - POLYNEUROPATHY [None]
